FAERS Safety Report 18409116 (Version 1)
Quarter: 2020Q4

REPORT INFORMATION
  Report Type: Spontaneous
  Country: US (occurrence: US)
  Receive Date: 20201020
  Receipt Date: 20201020
  Transmission Date: 20210114
  Serious: No
  Sender: FDA-Public Use
  Company Number: None

PATIENT
  Age: 82 Year
  Sex: Male

DRUGS (12)
  1. OXCARBAZEPINE. [Concomitant]
     Active Substance: OXCARBAZEPINE
  2. VALSARTAN. [Concomitant]
     Active Substance: VALSARTAN
  3. MEKTOVI [Suspect]
     Active Substance: BINIMETINIB
     Indication: MALIGNANT MELANOMA
     Route: 048
     Dates: start: 20190304, end: 20201020
  4. ASPIRIN. [Concomitant]
     Active Substance: ASPIRIN
  5. CENTRUM [Concomitant]
     Active Substance: VITAMINS
  6. FERROUS SULFATE. [Concomitant]
     Active Substance: FERROUS SULFATE
  7. BRAFTOVI [Suspect]
     Active Substance: ENCORAFENIB
     Indication: METASTATIC MALIGNANT MELANOMA
     Route: 048
  8. TAMSULOSIN [Concomitant]
     Active Substance: TAMSULOSIN
  9. VENTOLIN [Concomitant]
     Active Substance: ALBUTEROL SULFATE
  10. FINASTERIDE. [Concomitant]
     Active Substance: FINASTERIDE
  11. SYMBICORT [Concomitant]
     Active Substance: BUDESONIDE\FORMOTEROL FUMARATE DIHYDRATE
  12. ATORVASTATIN [Concomitant]
     Active Substance: ATORVASTATIN

REACTIONS (1)
  - Disease progression [None]

NARRATIVE: CASE EVENT DATE: 20201020
